FAERS Safety Report 25481778 (Version 1)
Quarter: 2025Q2

REPORT INFORMATION
  Report Type: Spontaneous
  Country: US (occurrence: US)
  Receive Date: 20250626
  Receipt Date: 20250626
  Transmission Date: 20250717
  Serious: Yes (Hospitalization, Other)
  Sender: AUROBINDO
  Company Number: US-AUROBINDO-AUR-APL-2025-031193

PATIENT
  Age: 44 Year
  Sex: Male

DRUGS (6)
  1. PRASUGREL [Suspect]
     Active Substance: PRASUGREL
     Indication: Angina pectoris
     Route: 065
  2. NITROGLYCERIN [Suspect]
     Active Substance: NITROGLYCERIN
     Indication: Angina pectoris
     Route: 060
  3. NITROGLYCERIN [Suspect]
     Active Substance: NITROGLYCERIN
     Route: 042
  4. HEPARIN [Suspect]
     Active Substance: HEPARIN SODIUM
     Indication: Angina pectoris
     Route: 042
  5. CANGRELOR [Concomitant]
     Active Substance: CANGRELOR
     Indication: Central nervous system stimulation
     Route: 065
  6. CLOPIDOGREL [Concomitant]
     Active Substance: CLOPIDOGREL BISULFATE
     Indication: Product used for unknown indication
     Route: 065

REACTIONS (1)
  - Drug ineffective [Unknown]
